FAERS Safety Report 4959578-1 (Version None)
Quarter: 2006Q1

REPORT INFORMATION
  Report Type: 
  Country: None (occurrence: None)
  Receive Date: 20060331
  Receipt Date: 20060209
  Transmission Date: 20060701
  Serious: Yes (Hospitalization, Disabling)
  Sender: FDA-Public Use
  Company Number: US-MERCK-0602USA02548

PATIENT
  Age: 59 Year
  Sex: Male
  Weight: 86 kg

DRUGS (4)
  1. VIOXX [Suspect]
     Indication: NECK PAIN
     Route: 048
     Dates: start: 20030801, end: 20041001
  2. COUGH, COLD, AND FLU THERAPIES (UNSPECIFIED) [Concomitant]
     Route: 065
  3. RANITIDINE [Concomitant]
     Route: 065
  4. ALPRAZOLAM [Concomitant]
     Route: 065

REACTIONS (2)
  - FOOD POISONING [None]
  - MYOCARDIAL INFARCTION [None]
